FAERS Safety Report 5393232-X (Version None)
Quarter: 2007Q3

REPORT INFORMATION
  Report Type: 
  Country: None (occurrence: None)
  Receive Date: 20070718
  Receipt Date: 20060612
  Transmission Date: 20080115
  Serious: Yes (Hospitalization, Other)
  Sender: FDA-Public Use
  Company Number: 2006074917

PATIENT
  Age: 68 Year
  Sex: Male
  Weight: 135.6255 kg

DRUGS (2)
  1. CELEBREX [Suspect]
     Indication: ARTHRITIS
     Dosage: 200 MG, (200 MG, 1 IN 1 D)
     Dates: start: 20020101, end: 20030101
  2. CELEBREX [Suspect]
     Indication: PAIN IN EXTREMITY
     Dosage: 200 MG, (200 MG, 1 IN 1 D)
     Dates: start: 20020101, end: 20030101

REACTIONS (1)
  - MYOCARDIAL INFARCTION [None]
